FAERS Safety Report 11918851 (Version 1)
Quarter: 2016Q1

REPORT INFORMATION
  Report Type: Spontaneous
  Country: US (occurrence: US)
  Receive Date: 20160115
  Receipt Date: 20160115
  Transmission Date: 20160526
  Serious: No
  Sender: FDA-Public Use
  Company Number: US-ASTRAZENECA-2016SE01627

PATIENT
  Sex: Female
  Weight: 112.9 kg

DRUGS (10)
  1. FARXIGA [Suspect]
     Active Substance: DAPAGLIFLOZIN PROPANEDIOL
     Indication: TYPE 2 DIABETES MELLITUS
     Route: 048
     Dates: start: 201512
  2. IRON OXIDES [Concomitant]
     Active Substance: FERRIC OXIDE RED
  3. BYDUREON [Suspect]
     Active Substance: EXENATIDE
     Indication: TYPE 2 DIABETES MELLITUS
     Route: 058
     Dates: start: 201502
  4. LANTUS [Concomitant]
     Active Substance: INSULIN GLARGINE
  5. VITAMIN D [Concomitant]
     Active Substance: CHOLECALCIFEROL
  6. METFORMIN [Concomitant]
     Active Substance: METFORMIN HYDROCHLORIDE
     Indication: DIABETES MELLITUS
  7. MULTIVITAMIN [Concomitant]
     Active Substance: VITAMINS
  8. FISH OIL [Concomitant]
     Active Substance: FISH OIL
  9. LISINOPRIL. [Suspect]
     Active Substance: LISINOPRIL
     Indication: BLOOD PRESSURE ABNORMAL
     Route: 048
  10. SERTRALINE [Concomitant]
     Active Substance: SERTRALINE HYDROCHLORIDE
     Indication: DEPRESSION

REACTIONS (6)
  - Underdose [Unknown]
  - Injection site mass [Unknown]
  - Needle issue [Unknown]
  - Orthostatic hypotension [Recovering/Resolving]
  - Dizziness [Recovering/Resolving]
  - Product quality issue [Unknown]
